FAERS Safety Report 16085186 (Version 2)
Quarter: 2019Q2

REPORT INFORMATION
  Report Type: Spontaneous
  Country: US (occurrence: US)
  Receive Date: 20190318
  Receipt Date: 20190403
  Transmission Date: 20190711
  Serious: Yes (Other)
  Sender: FDA-Public Use
  Company Number: US-009507513-1903USA004405

PATIENT

DRUGS (5)
  1. VICTOZA [Suspect]
     Active Substance: LIRAGLUTIDE
  2. ZOCOR [Suspect]
     Active Substance: SIMVASTATIN
     Route: 048
  3. TRULICITY [Suspect]
     Active Substance: DULAGLUTIDE
  4. PRINIVIL [Suspect]
     Active Substance: LISINOPRIL
     Route: 048
  5. PROCARDIA [Suspect]
     Active Substance: NIFEDIPINE

REACTIONS (13)
  - Vomiting [Unknown]
  - Drug intolerance [Unknown]
  - Vomiting [Unknown]
  - Drug intolerance [Unknown]
  - Nausea [Unknown]
  - Urticaria [Unknown]
  - Diarrhoea [Unknown]
  - Nausea [Unknown]
  - Arthralgia [Unknown]
  - Anaphylactic shock [Unknown]
  - Anaphylactic reaction [Unknown]
  - Diarrhoea [Unknown]
  - Rash [Unknown]

NARRATIVE: CASE EVENT DATE: 20150130
